FAERS Safety Report 4561156-3 (Version None)
Quarter: 2005Q1

REPORT INFORMATION
  Report Type: 
  Country: None (occurrence: None)
  Receive Date: 20050121
  Receipt Date: 20050106
  Transmission Date: 20050727
  Serious: Yes (Other)
  Sender: FDA-Public Use
  Company Number: 220011M03USA

PATIENT
  Age: 13 Year
  Sex: Male
  Weight: 64.41 kg

DRUGS (5)
  1. SAIZEN [Suspect]
     Indication: GROWTH HORMONE DEFICIENCY
     Dosage: 4.4 MG, 1 IN 1 DAY, SUBCUTANEOUS
     Route: 058
     Dates: start: 20010927, end: 20030910
  2. DESMOPRESSION [Concomitant]
  3. LEVOTHYROXINE SODIUM [Concomitant]
  4. HYDROCORTISONE ACETATE [Concomitant]
  5. METFORMIN HCL [Concomitant]

REACTIONS (8)
  - ABDOMINAL PAIN UPPER [None]
  - ARTHRALGIA [None]
  - CRANIOPHARYNGIOMA [None]
  - ENCEPHALOMALACIA [None]
  - EPISTAXIS [None]
  - HEADACHE [None]
  - NEOPLASM RECURRENCE [None]
  - VOMITING [None]
